FAERS Safety Report 24857755 (Version 1)
Quarter: 2025Q1

REPORT INFORMATION
  Report Type: Spontaneous
  Country: US (occurrence: None)
  Receive Date: 20250117
  Receipt Date: 20250117
  Transmission Date: 20250409
  Serious: Yes (Hospitalization)
  Sender: FDA-CTU
  Company Number: None

PATIENT
  Age: 65 Year
  Sex: Female
  Weight: 81 kg

DRUGS (4)
  1. ERTAPENEM [Suspect]
     Active Substance: ERTAPENEM
     Indication: Osteomyelitis
     Dosage: 1 G GRAM DAILY INTRAVENOUS
     Route: 042
     Dates: start: 20240920, end: 20241005
  2. toprol xl 25mg [Concomitant]
  3. lipitor 80mg [Concomitant]
  4. HUMALOG [Concomitant]
     Active Substance: INSULIN LISPRO

REACTIONS (1)
  - Hallucination [None]

NARRATIVE: CASE EVENT DATE: 20241007
